FAERS Safety Report 8485803-9 (Version None)
Quarter: 2012Q3

REPORT INFORMATION
  Report Type: 
  Country: None (occurrence: None)
  Receive Date: 20120703
  Receipt Date: 20120629
  Transmission Date: 20120928
  Serious: No
  Sender: FDA-Public Use
  Company Number: US-PFIZER INC-2012153471

PATIENT
  Age: 54 Year
  Sex: Male
  Weight: 82.54 kg

DRUGS (2)
  1. EFFEXOR [Concomitant]
     Indication: DEPRESSION
     Dosage: 150 MG, 2X/DAY
  2. CHANTIX [Suspect]
     Indication: SMOKING CESSATION THERAPY
     Dosage: 0.5 MG, DAILY
     Dates: start: 20120101

REACTIONS (1)
  - DRUG INEFFECTIVE [None]
